FAERS Safety Report 22294956 (Version 1)
Quarter: 2023Q2

REPORT INFORMATION
  Report Type: Spontaneous
  Country: US (occurrence: None)
  Receive Date: 20230505
  Receipt Date: 20230505
  Transmission Date: 20230722
  Serious: Yes (Death)
  Sender: FDA-Public Use
  Company Number: None

PATIENT
  Age: 76 Year
  Sex: Female
  Weight: 47.63 kg

DRUGS (7)
  1. HYCAMTIN [Suspect]
     Active Substance: TOPOTECAN HYDROCHLORIDE
     Dosage: OTHER FREQUENCY : DAYS 1-5;?OTHER ROUTE : ORAL-21 DAY CYCLE;?
     Route: 050
     Dates: start: 202304
  2. COLACE [Concomitant]
     Active Substance: DOCUSATE SODIUM
  3. DURAGESIC [Concomitant]
     Active Substance: FENTANYL
  4. ENHERTU [Concomitant]
     Active Substance: FAM-TRASTUZUMAB DERUXTECAN-NXKI
  5. LACTULOSE [Concomitant]
     Active Substance: LACTULOSE
  6. MAGNESIUM OXIDE [Concomitant]
     Active Substance: MAGNESIUM OXIDE
  7. MORPHINE [Concomitant]
     Active Substance: MORPHINE

REACTIONS (1)
  - Death [None]

NARRATIVE: CASE EVENT DATE: 20230501
